FAERS Safety Report 5456278-9 (Version None)
Quarter: 2007Q3

REPORT INFORMATION
  Report Type: 
  Country: None (occurrence: None)
  Receive Date: 20070918
  Receipt Date: 20070330
  Transmission Date: 20080115
  Serious: Yes (Other)
  Sender: FDA-Public Use
  Company Number: US-ASTRAZENECA-2006UW24597

PATIENT
  Age: 14978 Day
  Sex: Female
  Weight: 130.9 kg

DRUGS (4)
  1. SEROQUEL [Suspect]
     Route: 048
     Dates: start: 20020101
  2. ZYPREXA [Concomitant]
  3. DEPAKOTE [Concomitant]
  4. LEXAPRO [Concomitant]

REACTIONS (1)
  - PANCREATITIS [None]
